FAERS Safety Report 4382621-8 (Version None)
Quarter: 2004Q2

REPORT INFORMATION
  Report Type: 
  Country: None (occurrence: None)
  Receive Date: 20040617
  Receipt Date: 20040607
  Transmission Date: 20050107
  Serious: Yes (Death, Hospitalization)
  Sender: FDA-Public Use
  Company Number: 2004210345FR

PATIENT
  Age: 73 Year
  Sex: Male

DRUGS (8)
  1. CAMPTOSAR [Suspect]
     Indication: SMALL CELL LUNG CANCER STAGE UNSPECIFIED
     Dosage: 65 MG/M2 (110 MG), CYCLIC, IV
     Route: 042
     Dates: start: 20040318, end: 20040318
  2. XATRAL (- SLOW RELEASE (ALFUZOSIN HYDROCHLORIDE) [Concomitant]
  3. APROVEL (IRBESARTAN) [Concomitant]
  4. FORLAX (MACROGOL) [Concomitant]
  5. DURAGESIC [Concomitant]
  6. ONDANSETRON HYDROCHLORIDE [Concomitant]
  7. OFLOXACIN [Concomitant]
  8. LOVENOX [Concomitant]

REACTIONS (9)
  - BENIGN COLONIC POLYP [None]
  - CATHETER RELATED INFECTION [None]
  - DEHYDRATION [None]
  - DIARRHOEA [None]
  - GENERAL PHYSICAL HEALTH DETERIORATION [None]
  - HAEMATOCHEZIA [None]
  - HYPONATRAEMIA [None]
  - SEPTIC SHOCK [None]
  - STAPHYLOCOCCAL INFECTION [None]
